FAERS Safety Report 9842918 (Version 1)
Quarter: 2013Q4

REPORT INFORMATION
  Report Type: Spontaneous
  Country: BR (occurrence: None)
  Receive Date: 20131211
  Receipt Date: 20131211
  Transmission Date: 20140711
  Serious: Yes (Other)
  Sender: FDA-Public Use
  Company Number: SPV1-2012-00257

PATIENT
  Age: 8 Year
  Sex: Male
  Weight: 18 kg

DRUGS (1)
  1. ELAPRASE [Suspect]
     Indication: MUCOPOLYSACCHARIDOSIS I
     Dosage: 2 DF. 1X/WEEK , IV DRIP
     Route: 041
     Dates: start: 20110801

REACTIONS (3)
  - Convulsion [None]
  - Nasopharyngitis [None]
  - Pyrexia [None]
